FAERS Safety Report 7132270-3 (Version None)
Quarter: 2010Q4

REPORT INFORMATION
  Report Type: 
  Country: None (occurrence: None)
  Receive Date: 20101202
  Receipt Date: 20101119
  Transmission Date: 20110411
  Serious: Yes (Hospitalization, Other)
  Sender: FDA-Public Use
  Company Number: PHHY2010CA61552

PATIENT
  Sex: Female

DRUGS (9)
  1. CLOZARIL [Suspect]
     Indication: SCHIZOPHRENIA
     Dosage: 350 MG
     Route: 048
     Dates: start: 20100301, end: 20100906
  2. TOLTERODINE TARTRATE [Concomitant]
  3. DOCUSATE SODIUM [Concomitant]
     Dosage: 100 MG, BID
  4. CRESTOR [Concomitant]
  5. PARSITAN [Concomitant]
  6. GLICLAZIDE [Concomitant]
     Dosage: 30 MG, QD
  7. ARTHROTEC [Concomitant]
     Dosage: 60 MG, TID
  8. HCT [Concomitant]
     Dosage: 25 MG, QD
  9. METFORMIN [Concomitant]
     Dosage: 500 MG, BID

REACTIONS (11)
  - BLOOD CREATININE INCREASED [None]
  - BLOOD UREA INCREASED [None]
  - CYSTITIS [None]
  - DIALYSIS [None]
  - LOSS OF CONSCIOUSNESS [None]
  - NEUTROPHIL COUNT INCREASED [None]
  - RENAL FAILURE [None]
  - URAEMIC ENCEPHALOPATHY [None]
  - URINE OUTPUT DECREASED [None]
  - UROSEPSIS [None]
  - WHITE BLOOD CELL COUNT INCREASED [None]
